FAERS Safety Report 10559458 (Version 10)
Quarter: 2015Q3

REPORT INFORMATION
  Report Type: Report from Study
  Country: GB (occurrence: GB)
  Receive Date: 20141103
  Receipt Date: 20150921
  Transmission Date: 20151125
  Serious: Yes (Hospitalization)
  Sender: FDA-Public Use
  Company Number: GB-ROCHE-1481946

PATIENT
  Age: 52 Year
  Sex: Male
  Weight: 120 kg

DRUGS (9)
  1. GDC-0199 (BCL-2 SELECTIVE INHIBITOR) [Suspect]
     Active Substance: VENETOCLAX
     Route: 048
     Dates: start: 20150220
  2. METOCLOPRAMIDE. [Concomitant]
     Active Substance: METOCLOPRAMIDE
     Indication: NAUSEA
     Route: 048
     Dates: start: 20140901, end: 20141007
  3. METOCLOPRAMIDE. [Concomitant]
     Active Substance: METOCLOPRAMIDE
     Indication: VOMITING
  4. ALLOPURINOL. [Concomitant]
     Active Substance: ALLOPURINOL
     Indication: PROPHYLAXIS
     Route: 048
     Dates: start: 20140704
  5. RAMIPRIL. [Concomitant]
     Active Substance: RAMIPRIL
     Indication: HYPERTENSION
     Route: 048
  6. GDC-0199 (BCL-2 SELECTIVE INHIBITOR) [Suspect]
     Active Substance: VENETOCLAX
     Indication: CHRONIC LYMPHOCYTIC LEUKAEMIA
     Dosage: LAST DOSE 400MG PRIOR TO NEUTROPENIC INFECTION ONSET ON:  23/OCT/2014?LAST DOSE 400MG PRIOR TO INFLU
     Route: 048
     Dates: start: 20140708, end: 20150204
  7. OBINUTUZUMAB [Suspect]
     Active Substance: OBINUTUZUMAB
     Indication: CHRONIC LYMPHOCYTIC LEUKAEMIA
     Dosage: LAST DOSE 1000 MG PRIOR TO NEUTROPENIC INEFECTION ONSET: 07/OCT/2014?LAST DOSE 1000 MG PRIOR TO INFL
     Route: 042
     Dates: start: 20140812
  8. FERROUS FUMARATE [Concomitant]
     Active Substance: FERROUS FUMARATE
     Indication: IRON DEFICIENCY
     Route: 048
     Dates: start: 20141230
  9. LOPERAMIDE [Concomitant]
     Active Substance: LOPERAMIDE
     Indication: DIARRHOEA
     Route: 048
     Dates: start: 20140810, end: 20150529

REACTIONS (2)
  - Influenza [Recovered/Resolved]
  - Neutropenic infection [Recovered/Resolved]

NARRATIVE: CASE EVENT DATE: 20141023
